FAERS Safety Report 9368652 (Version 1)
Quarter: 2013Q2

REPORT INFORMATION
  Report Type: Spontaneous
  Country: US (occurrence: US)
  Receive Date: 20130626
  Receipt Date: 20130626
  Transmission Date: 20140414
  Serious: No
  Sender: FDA-Public Use
  Company Number: US-ASTELLAS-2013US001461

PATIENT
  Sex: Male

DRUGS (3)
  1. VESICARE [Suspect]
     Indication: INCONTINENCE
     Dosage: 5 MG, UNKNOWN/D
     Route: 048
     Dates: start: 201301
  2. VESICARE [Suspect]
     Indication: MICTURITION URGENCY
  3. VESICARE [Suspect]
     Indication: POLLAKIURIA

REACTIONS (1)
  - Drug ineffective [Unknown]
